FAERS Safety Report 18340237 (Version 1)
Quarter: 2020Q4

REPORT INFORMATION
  Report Type: Spontaneous
  Country: HR (occurrence: HR)
  Receive Date: 20201002
  Receipt Date: 20201002
  Transmission Date: 20210113
  Serious: Yes (Other)
  Sender: FDA-Public Use
  Company Number: HR-TEVA-2020-HR-1833463

PATIENT
  Age: 58 Year
  Sex: Male

DRUGS (6)
  1. PRAZINE (PROMAZINE HYDROCHLORIDE) [Suspect]
     Active Substance: PROMAZINE HYDROCHLORIDE
     Dosage: 375 MG
     Route: 048
     Dates: start: 202008, end: 202008
  2. SANVAL [Suspect]
     Active Substance: ZOLPIDEM TARTRATE
     Dosage: 75 MG
     Route: 048
     Dates: start: 202008, end: 202008
  3. FEVARIN [Suspect]
     Active Substance: FLUVOXAMINE MALEATE
     Dosage: 1500 MG
     Route: 048
     Dates: start: 202008, end: 202008
  4. NORMABEL [Suspect]
     Active Substance: DIAZEPAM
     Dosage: 75 MG
     Route: 048
     Dates: start: 202008, end: 202008
  5. GLUFORMIN [Suspect]
     Active Substance: METFORMIN HYDROCHLORIDE
     Dosage: 12750 MG
     Route: 048
     Dates: start: 202008, end: 202008
  6. ARVIND [Suspect]
     Active Substance: LAMOTRIGINE
     Dosage: 150 MG
     Route: 048
     Dates: start: 202008, end: 202008

REACTIONS (6)
  - Intentional overdose [Unknown]
  - Fall [Unknown]
  - Miosis [Unknown]
  - Blood pH decreased [Unknown]
  - Suicide attempt [Unknown]
  - Coma [Unknown]

NARRATIVE: CASE EVENT DATE: 202008
